FAERS Safety Report 8384369-1 (Version None)
Quarter: 2012Q2

REPORT INFORMATION
  Report Type: 
  Country: None (occurrence: None)
  Receive Date: 20120524
  Receipt Date: 20120522
  Transmission Date: 20120825
  Serious: Yes (Death, Hospitalization, Other)
  Sender: FDA-Public Use
  Company Number: KR-ABBOTT-12P-090-0928951-00

PATIENT
  Age: 76 Year
  Sex: Male

DRUGS (2)
  1. HUMIRA [Suspect]
     Indication: CROHN'S DISEASE
     Route: 058
     Dates: start: 20120404, end: 20120404
  2. SEVERAL ANTIBIOTICS [Concomitant]
     Indication: PRODUCT USED FOR UNKNOWN INDICATION

REACTIONS (6)
  - ABSCESS [None]
  - MULTI-ORGAN FAILURE [None]
  - CROHN'S DISEASE [None]
  - DEPRESSED LEVEL OF CONSCIOUSNESS [None]
  - NECROTISING COLITIS [None]
  - PNEUMONIA [None]
